FAERS Safety Report 16089217 (Version 1)
Quarter: 2019Q1

REPORT INFORMATION
  Report Type: Spontaneous
  Country: US (occurrence: US)
  Receive Date: 20190215
  Receipt Date: 20190215
  Transmission Date: 20190418
  Serious: Yes (Hospitalization)
  Sender: FDA-Public Use
  Company Number: None

PATIENT
  Age: 57 Year
  Sex: Male
  Weight: 99.79 kg

DRUGS (2)
  1. CLOZAPINE 100MG ODT [Suspect]
     Active Substance: CLOZAPINE
     Indication: PSYCHOTIC DISORDER
     Route: 048
     Dates: start: 20180130, end: 20180605
  2. CLOZAPINE 200MG ODT [Suspect]
     Active Substance: CLOZAPINE
     Indication: PSYCHOTIC DISORDER
     Dosage: DAILY AT 5PM
     Route: 048
     Dates: start: 20180130, end: 20180605

REACTIONS (3)
  - Faecaloma [None]
  - Subdural haematoma [None]
  - Seizure [None]

NARRATIVE: CASE EVENT DATE: 20180608
